FAERS Safety Report 25370972 (Version 1)
Quarter: 2025Q2

REPORT INFORMATION
  Report Type: Report from Study
  Country: CA (occurrence: CA)
  Receive Date: 20250528
  Receipt Date: 20250528
  Transmission Date: 20250716
  Serious: Yes (Death)
  Sender: ABBVIE
  Company Number: CA-ABBVIE-6287175

PATIENT
  Age: 72 Year
  Sex: Male

DRUGS (1)
  1. RINVOQ [Suspect]
     Active Substance: UPADACITINIB
     Indication: Crohn^s disease
     Dosage: FORM STRENGTH: 15 MG
     Route: 048
     Dates: start: 20250127, end: 20250509

REACTIONS (7)
  - Pneumonia fungal [Fatal]
  - Gingival bleeding [Unknown]
  - Oral herpes [Unknown]
  - Dyspnoea [Unknown]
  - Decreased appetite [Unknown]
  - Hypersomnia [Unknown]
  - Pneumonia [Fatal]
